FAERS Safety Report 9696711 (Version 1)
Quarter: 2013Q4

REPORT INFORMATION
  Report Type: Spontaneous
  Country: US (occurrence: US)
  Receive Date: 20131119
  Receipt Date: 20131119
  Transmission Date: 20140711
  Serious: No
  Sender: FDA-Public Use
  Company Number: US-GILEAD-2007-0014405

PATIENT
  Age: 37 Year
  Sex: Female
  Weight: 136.8 kg

DRUGS (13)
  1. LETAIRIS [Suspect]
     Indication: PULMONARY ARTERIAL HYPERTENSION
     Route: 048
     Dates: start: 20071104, end: 20071119
  2. VIAGRA [Concomitant]
     Route: 048
  3. OXYGEN [Concomitant]
     Dosage: CONTINUOUS
     Route: 045
  4. SPIRONOLACTONE [Concomitant]
     Route: 048
  5. TOPAMAX [Concomitant]
     Dosage: EVERY MORNING
     Route: 048
  6. ALBUTEROL [Concomitant]
     Route: 055
  7. ADVAIR [Concomitant]
     Route: 055
  8. SINGULAIR [Concomitant]
     Route: 048
  9. LEVOTHYROXINE [Concomitant]
     Route: 048
  10. RISPERDAL [Concomitant]
     Route: 048
  11. IBUPROFEN [Concomitant]
     Route: 048
  12. ECOTRIN [Concomitant]
     Route: 048
  13. VICODIN [Concomitant]
     Route: 048

REACTIONS (1)
  - Headache [Unknown]
